FAERS Safety Report 18431395 (Version 3)
Quarter: 2021Q2

REPORT INFORMATION
  Report Type: Spontaneous
  Country: DE (occurrence: DE)
  Receive Date: 20201027
  Receipt Date: 20210530
  Transmission Date: 20210717
  Serious: Yes (Other)
  Sender: FDA-Public Use
  Company Number: DE-CELLTRION INC.-2017DE014721

PATIENT

DRUGS (15)
  1. RITUXIMAB (UNKNOWN) [Suspect]
     Active Substance: RITUXIMAB
     Dosage: 375 MG/M2, TWO CYCLES ON DAY 1 (INTENSIFICATION REGIMEN)
  2. METHOTREXATE. [Suspect]
     Active Substance: METHOTREXATE
     Dosage: 50% DOSE REDUCTION AFTER THE FIRST CYCLE
     Route: 042
  3. CYTARABINE. [Suspect]
     Active Substance: CYTARABINE
     Indication: ANGIOCENTRIC LYMPHOMA
     Dosage: 3G/M2 ON DAY 1 AND 2
  4. ETOPOSIDE. [Concomitant]
     Active Substance: ETOPOSIDE
     Indication: ANGIOCENTRIC LYMPHOMA
     Dosage: 150 MG/M2 (DAY ?5 TO ?3)
  5. CYTARABINE. [Suspect]
     Active Substance: CYTARABINE
     Dosage: 3 MG/M2 IN 2 CYCLES ON DAY 1 AND 2
  6. DEXAMETHASONE. [Suspect]
     Active Substance: DEXAMETHASONE
     Indication: ANGIOCENTRIC LYMPHOMA
     Dosage: 4 MG IN 2 CYCLES ON DAY 03
     Route: 037
  7. CARMUSTINE. [Concomitant]
     Active Substance: CARMUSTINE
     Indication: ANGIOCENTRIC LYMPHOMA
     Dosage: 400 MG/M2 (DAY ?5)
  8. RITUXIMAB (UNKNOWN) [Suspect]
     Active Substance: RITUXIMAB
     Indication: ANGIOCENTRIC LYMPHOMA
     Dosage: FOUR ALTERNATING CYCLES OF R?CHOP?21 AND HIGH DOSE METHOTREXATE
  9. METHOTREXATE. [Suspect]
     Active Substance: METHOTREXATE
     Dosage: 12 MG IN 2 CYCLES ON DAY 1
     Route: 037
  10. METHOTREXATE. [Suspect]
     Active Substance: METHOTREXATE
     Indication: ANGIOCENTRIC LYMPHOMA
     Dosage: 4 G/M2 (HIGH DOSE)
     Route: 042
  11. CYTARABINE. [Suspect]
     Active Substance: CYTARABINE
     Dosage: 40 MG IN 2 CYCLES ON DAY 3
     Route: 037
  12. THIOTEPA. [Suspect]
     Active Substance: THIOTEPA
     Dosage: 2 X 5 MG/KG (DAY ?4 AND ?3)
  13. CHOP [Suspect]
     Active Substance: CYCLOPHOSPHAMIDE\DOXORUBICIN\PREDNISONE\VINCRISTINE
     Indication: ANGIOCENTRIC LYMPHOMA
     Dosage: FOUR ALTERNATING CYCLES OF R?CHOP?21 AND HIGH DOSE METHOTREXATE
  14. THIOTEPA. [Suspect]
     Active Substance: THIOTEPA
     Indication: ANGIOCENTRIC LYMPHOMA
     Dosage: 40 MG/M2 IN 2 CYCLES ON DAY 2
  15. METHOTREXATE. [Suspect]
     Active Substance: METHOTREXATE
     Dosage: 12 MG ON DAY 3

REACTIONS (3)
  - Off label use [Unknown]
  - Febrile neutropenia [Unknown]
  - Acute kidney injury [Recovered/Resolved]
